FAERS Safety Report 7989327-4 (Version None)
Quarter: 2011Q4

REPORT INFORMATION
  Report Type: 
  Country: None (occurrence: None)
  Receive Date: 20111219
  Receipt Date: 20111213
  Transmission Date: 20120403
  Serious: Yes (Death, Life-Threatening, Hospitalization, Other)
  Sender: FDA-Public Use
  Company Number: JP-CELGENEUS-087-21880-11060257

PATIENT
  Sex: Female

DRUGS (19)
  1. ALLOPURINOL [Concomitant]
     Indication: PROPHYLAXIS
     Dosage: 300 MILLIGRAM
     Route: 048
     Dates: start: 20110314, end: 20110417
  2. REVLIMID [Suspect]
     Dosage: 25 MILLIGRAM
     Route: 048
     Dates: start: 20110419, end: 20110502
  3. DEXAMETHASONE ACETATE [Suspect]
     Indication: MULTIPLE MYELOMA
     Dosage: 8 MILLIGRAM
     Route: 048
     Dates: start: 20110415, end: 20110522
  4. VALTREX [Concomitant]
     Indication: PROPHYLAXIS
     Dosage: 500 MILLIGRAM
     Route: 048
     Dates: start: 20110314, end: 20110522
  5. OMEPRAZOLE [Concomitant]
     Indication: PROPHYLAXIS
     Dosage: 20 MILLIGRAM
     Route: 048
     Dates: start: 20110314, end: 20110522
  6. FENTANYL-100 [Concomitant]
     Dosage: 2.1 MILLIGRAM
     Route: 062
     Dates: start: 20110314, end: 20110601
  7. DAIPHEN [Concomitant]
     Indication: PROPHYLAXIS
     Dosage: 3T
     Route: 048
     Dates: start: 20110314, end: 20110411
  8. DAIPHEN [Concomitant]
     Dosage: 2T
     Route: 048
     Dates: start: 20110412, end: 20110522
  9. REVLIMID [Suspect]
     Indication: REFRACTORY CANCER
     Dosage: 15 MILLIGRAM
     Route: 048
     Dates: start: 20110412, end: 20110418
  10. DEXAMETHASONE [Concomitant]
     Indication: REFRACTORY CANCER
     Dosage: 1.65 MILLIGRAM
     Route: 041
     Dates: start: 20110605, end: 20110605
  11. MAGMITT [Concomitant]
     Indication: PROPHYLAXIS
     Dosage: 1980 MILLIGRAM
     Route: 048
     Dates: start: 20110314, end: 20110411
  12. BIO-THREE [Concomitant]
     Indication: PROPHYLAXIS
     Dosage: 6T
     Route: 048
     Dates: start: 20110314, end: 20110522
  13. REVLIMID [Suspect]
     Indication: MULTIPLE MYELOMA
     Dosage: 10 MILLIGRAM
     Route: 048
     Dates: start: 20110314, end: 20110403
  14. ITRACONAZOLE [Concomitant]
     Indication: PROPHYLAXIS
     Dosage: 20 MILLILITER
     Route: 048
     Dates: start: 20110314, end: 20110411
  15. LORFENAMIN [Concomitant]
     Dosage: 180 MILLIGRAM
     Route: 048
     Dates: start: 20110426, end: 20110522
  16. REVLIMID [Suspect]
     Dosage: 25 MILLIGRAM
     Route: 048
     Dates: start: 20110510, end: 20110522
  17. DEXAMETHASONE ACETATE [Suspect]
     Indication: REFRACTORY CANCER
     Dosage: 8 MILLIGRAM
     Route: 048
     Dates: start: 20110525, end: 20110601
  18. DEXAMETHASONE [Concomitant]
     Indication: MULTIPLE MYELOMA
     Dosage: 3.3 MILLIGRAM
     Route: 041
     Dates: start: 20110602, end: 20110604
  19. KETOPROFEN [Concomitant]
     Indication: MULTIPLE MYELOMA
     Route: 062
     Dates: start: 20110412, end: 20110522

REACTIONS (6)
  - COLITIS ISCHAEMIC [None]
  - HEPATIC FAILURE [None]
  - DISSEMINATED INTRAVASCULAR COAGULATION [None]
  - PLATELET COUNT DECREASED [None]
  - LARGE INTESTINE PERFORATION [None]
  - SEPSIS [None]
